FAERS Safety Report 10227935 (Version 1)
Quarter: 2014Q2

REPORT INFORMATION
  Report Type: Spontaneous
  Country: GB (occurrence: GB)
  Receive Date: 20140610
  Receipt Date: 20140610
  Transmission Date: 20141212
  Serious: Yes (Hospitalization)
  Sender: FDA-Public Use
  Company Number: GB-009507513-1406GBR002002

PATIENT
  Sex: Male

DRUGS (4)
  1. FINASTERIDE [Suspect]
     Dosage: 5 MG, QD
     Route: 048
  2. TAMSULOSIN HYDROCHLORIDE [Concomitant]
  3. SIMVASTATIN [Concomitant]
     Route: 048
  4. BISOPROLOL [Concomitant]

REACTIONS (2)
  - Peripheral swelling [Unknown]
  - Swelling face [Unknown]
